FAERS Safety Report 5028795-7 (Version None)
Quarter: 2006Q2

REPORT INFORMATION
  Report Type: 
  Country: None (occurrence: None)
  Receive Date: 20060501
  Receipt Date: 20060330
  Transmission Date: 20061013
  Serious: No
  Sender: FDA-Public Use
  Company Number: 200612499US

PATIENT
  Age: 73 Year
  Sex: Female
  Weight: 54.09 kg

DRUGS (1)
  1. KETEK [Suspect]
     Indication: BRONCHITIS
     Dosage: 800 MG QD
     Dates: start: 20060201

REACTIONS (1)
  - VISION BLURRED [None]
